FAERS Safety Report 16855537 (Version 1)
Quarter: 2019Q4

REPORT INFORMATION
  Report Type: Spontaneous
  Country: US (occurrence: US)
  Receive Date: 20190926
  Receipt Date: 20190926
  Transmission Date: 20200122
  Serious: Yes (Hospitalization)
  Sender: FDA-Public Use
  Company Number: None

PATIENT
  Age: 43 Year
  Sex: Female

DRUGS (4)
  1. ASPIRIN. [Concomitant]
     Active Substance: ASPIRIN
  2. SOTALOL. [Concomitant]
     Active Substance: SOTALOL
  3. HUMIRA [Suspect]
     Active Substance: ADALIMUMAB
     Indication: PSORIASIS
     Dosage: ?          OTHER FREQUENCY:EVERY  WEEK;?
     Route: 058
     Dates: start: 20170720
  4. NAPROXEN/FOLIC ACID [Concomitant]

REACTIONS (1)
  - Surgery [None]

NARRATIVE: CASE EVENT DATE: 20190924
